FAERS Safety Report 17445127 (Version 3)
Quarter: 2020Q2

REPORT INFORMATION
  Report Type: Spontaneous
  Country: US (occurrence: US)
  Receive Date: 20200221
  Receipt Date: 20200609
  Transmission Date: 20200713
  Serious: No
  Sender: FDA-Public Use
  Company Number: US-PFIZER INC-2019415377

PATIENT
  Age: 61 Year
  Sex: Female
  Weight: 95 kg

DRUGS (3)
  1. DETROL LA [Suspect]
     Active Substance: TOLTERODINE TARTRATE
     Indication: BLADDER SPHINCTER ATONY
     Dosage: 4 MG, 1X/DAY
     Route: 048
  2. DETROL LA [Suspect]
     Active Substance: TOLTERODINE TARTRATE
     Indication: MULTIPLE SCLEROSIS
     Dosage: 4 MG, 1X/DAY
     Route: 048
  3. DETROL LA [Suspect]
     Active Substance: TOLTERODINE TARTRATE
     Indication: URINARY INCONTINENCE
     Dosage: 4 MG, 1X/DAY
     Route: 048

REACTIONS (5)
  - Fall [Unknown]
  - Memory impairment [Unknown]
  - Pollakiuria [Not Recovered/Not Resolved]
  - Insomnia [Not Recovered/Not Resolved]
  - Condition aggravated [Not Recovered/Not Resolved]

NARRATIVE: CASE EVENT DATE: 201912
